FAERS Safety Report 25102193 (Version 1)
Quarter: 2025Q1

REPORT INFORMATION
  Report Type: Spontaneous
  Country: US (occurrence: US)
  Receive Date: 20250320
  Receipt Date: 20250320
  Transmission Date: 20250409
  Serious: Yes (Other)
  Sender: MALLINCKRODT
  Company Number: US-MALLINCKRODT-MNK202501613

PATIENT
  Age: 53 Year
  Sex: Male

DRUGS (8)
  1. NITRIC OXIDE [Suspect]
     Active Substance: NITRIC OXIDE
     Indication: Portopulmonary hypertension
     Route: 055
  2. NOREPINEPHRINE [Concomitant]
     Active Substance: NOREPINEPHRINE
  3. VASOPRESSIN [Concomitant]
     Active Substance: VASOPRESSIN
  4. EPINEPHRINE [Concomitant]
     Active Substance: EPINEPHRINE
  5. CRYOPRECIPITATED ANTIHEMOPHILIC FACTOR (HUMAN) [Concomitant]
     Active Substance: CRYOPRECIPITATED ANTIHEMOPHILIC FACTOR (HUMAN)
  6. HUMAN RED BLOOD CELL [Concomitant]
     Active Substance: HUMAN RED BLOOD CELL
  7. HUMAN PLASMA [Concomitant]
     Active Substance: HUMAN PLASMA
  8. PLATELETS [Concomitant]
     Active Substance: HUMAN PLATELET, ALLOGENIC

REACTIONS (5)
  - Right ventricular failure [Recovered/Resolved]
  - Cardiac ventricular thrombosis [Recovered/Resolved]
  - Acidosis [Unknown]
  - Vasoplegia syndrome [Unknown]
  - Product use issue [Unknown]
